FAERS Safety Report 7942588-X (Version None)
Quarter: 2011Q4

REPORT INFORMATION
  Report Type: 
  Country: None (occurrence: None)
  Receive Date: 20111128
  Receipt Date: 20111108
  Transmission Date: 20120403
  Serious: Yes (Hospitalization)
  Sender: FDA-Public Use
  Company Number: AU-GLAXOSMITHKLINE-B0765258A

PATIENT
  Age: 56 Year
  Sex: Male

DRUGS (1)
  1. BECLOMETHASONE DIPROPIONATE [Suspect]
     Indication: SEASONAL ALLERGY
     Dosage: 2SPR AS REQUIRED
     Route: 045
     Dates: end: 20110901

REACTIONS (5)
  - VISUAL IMPAIRMENT [None]
  - SYNCOPE [None]
  - DIZZINESS [None]
  - BLOOD PRESSURE IMMEASURABLE [None]
  - VISION BLURRED [None]
